FAERS Safety Report 14342536 (Version 1)
Quarter: 2018Q1

REPORT INFORMATION
  Report Type: Spontaneous
  Country: JP (occurrence: JP)
  Receive Date: 20180102
  Receipt Date: 20180102
  Transmission Date: 20180509
  Serious: Yes (Other)
  Sender: FDA-Public Use
  Company Number: JP-GLAXOSMITHKLINE-PHHY2011JP50291

PATIENT
  Sex: Male

DRUGS (5)
  1. ACTH [Concomitant]
     Active Substance: CORTICOTROPIN
  2. NSAID^S [Concomitant]
     Active Substance: UNSPECIFIED INGREDIENT
  3. VOLTAREN [Suspect]
     Active Substance: DICLOFENAC SODIUM
     Dosage: 200 MG, UNK
     Route: 048
  4. SYAKUYAKUKANZOTO [Concomitant]
     Active Substance: UNSPECIFIED INGREDIENT
     Dosage: 22.5 MG, UNK
  5. VOLTAREN [Suspect]
     Active Substance: DICLOFENAC SODIUM
     Dosage: UNK
     Route: 065

REACTIONS (6)
  - Amputation stump pain [Recovered/Resolved]
  - Sleep disorder [Recovered/Resolved]
  - Renal failure [Unknown]
  - Drug ineffective [Unknown]
  - Gastric ulcer [Unknown]
  - Muscle disorder [Recovered/Resolved]
